FAERS Safety Report 4340185-9 (Version None)
Quarter: 2004Q1

REPORT INFORMATION
  Report Type: 
  Country: None (occurrence: None)
  Receive Date: 20040329
  Receipt Date: 20040205
  Transmission Date: 20041129
  Serious: No
  Sender: FDA-Public Use
  Company Number: 04P-163-0249416-00

PATIENT
  Age: 75 Year
  Sex: Female
  Weight: 55.3388 kg

DRUGS (11)
  1. HUMIRA [Suspect]
     Indication: RHEUMATOID ARTHRITIS
     Dosage: 40 MG, 1 IN 2 WK, SUBCUTANEOUS
     Route: 058
     Dates: start: 20030501
  2. METHOTREXATE [Concomitant]
  3. CELECOXIB [Concomitant]
  4. LEXAPRO [Concomitant]
  5. CALCIUM [Concomitant]
  6. FISH OIL WITH OMEGA 3 [Concomitant]
  7. CONJUGATED ESTROGEN [Concomitant]
  8. CYANOCOBALMIN [Concomitant]
  9. MULTI-VITAMIN [Concomitant]
  10. DONEPEZIL HYDROCHLORIDE [Concomitant]
  11. FOLIC ACID [Concomitant]

REACTIONS (1)
  - INJECTION SITE STINGING [None]
